FAERS Safety Report 6021603-7 (Version None)
Quarter: 2008Q4

REPORT INFORMATION
  Report Type: 
  Country: None (occurrence: None)
  Receive Date: 20081229
  Receipt Date: 20081224
  Transmission Date: 20090506
  Serious: Yes (Death, Other)
  Sender: FDA-Public Use
  Company Number: PHHY2008JP33163

PATIENT
  Sex: Male

DRUGS (5)
  1. DIOVAN [Suspect]
     Indication: HYPERTENSION
     Dosage: 40 MG, QD
     Route: 048
     Dates: start: 20071114, end: 20071205
  2. NORVASC [Concomitant]
     Indication: HYPERTENSION
     Dosage: 5 MG, UNK
     Route: 048
     Dates: start: 20051122, end: 20071205
  3. PLAVIX [Concomitant]
     Dosage: 75 MG, UNK
     Route: 048
     Dates: end: 20071205
  4. SYMMETREL [Concomitant]
     Dosage: 50 MG, UNK
     Route: 048
     Dates: end: 20071205
  5. ARICEPT [Concomitant]
     Dosage: 5 MG, UNK
     Route: 048
     Dates: end: 20071205

REACTIONS (3)
  - DEATH [None]
  - GASTRIC CANCER [None]
  - GASTROINTESTINAL HAEMORRHAGE [None]
